FAERS Safety Report 21542116 (Version 1)
Quarter: 2022Q4

REPORT INFORMATION
  Report Type: Report from Study
  Country: US (occurrence: US)
  Receive Date: 20221102
  Receipt Date: 20221102
  Transmission Date: 20230113
  Serious: Yes (Other)
  Sender: FDA-Public Use
  Company Number: US-BRISTOL-MYERS SQUIBB COMPANY-2022-126706

PATIENT
  Age: 93 Year
  Sex: Male
  Weight: 72.57 kg

DRUGS (1)
  1. POMALYST [Suspect]
     Active Substance: POMALIDOMIDE
     Indication: Plasma cell myeloma
     Dosage: 14 OUT OF 28 DAYS
     Route: 048
     Dates: start: 202105

REACTIONS (3)
  - Wound infection [Unknown]
  - Off label use [Unknown]
  - Skin laceration [Unknown]

NARRATIVE: CASE EVENT DATE: 20220916
